FAERS Safety Report 9861744 (Version 1)
Quarter: 2014Q1

REPORT INFORMATION
  Report Type: Spontaneous
  Country: US (occurrence: None)
  Receive Date: 20140131
  Receipt Date: 20140131
  Transmission Date: 20141002
  Serious: Yes (Hospitalization)
  Sender: FDA-Public Use
  Company Number: None

PATIENT
  Age: 79 Year
  Sex: Female
  Weight: 63.96 kg

DRUGS (3)
  1. GEMCITABINE [Suspect]
     Indication: BLADDER CANCER
     Dates: start: 20130918
  2. CISPLATIN [Suspect]
     Dosage: POST CHEMO
     Route: 042
  3. NEULASTA [Suspect]
     Dosage: 24-48 HRS POST CHEMO
     Route: 058
     Dates: start: 20130919

REACTIONS (9)
  - Drug intolerance [None]
  - Post procedural complication [None]
  - Urogenital fistula [None]
  - Pelvic fluid collection [None]
  - Malnutrition [None]
  - Adjustment disorder [None]
  - Urosepsis [None]
  - Pelvic infection [None]
  - Adhesion [None]
